FAERS Safety Report 4850379-1 (Version None)
Quarter: 2005Q4

REPORT INFORMATION
  Report Type: 
  Country: None (occurrence: None)
  Receive Date: 20051123
  Receipt Date: 20050927
  Transmission Date: 20060501
  Serious: No
  Sender: FDA-Public Use
  Company Number: 218085

PATIENT
  Sex: Female

DRUGS (1)
  1. RAPTIVA [Suspect]
     Indication: DRUG USE FOR UNKNOWN INDICATION

REACTIONS (3)
  - BRONCHITIS [None]
  - INFLUENZA LIKE ILLNESS [None]
  - SINUSITIS [None]
